FAERS Safety Report 4920770-3 (Version None)
Quarter: 2006Q1

REPORT INFORMATION
  Report Type: 
  Country: None (occurrence: None)
  Receive Date: 20060217
  Receipt Date: 20060125
  Transmission Date: 20060701
  Serious: Yes (Death, Hospitalization)
  Sender: FDA-Public Use
  Company Number: 2006-01-1534

PATIENT
  Age: 70 Year
  Sex: Male

DRUGS (3)
  1. DACARBAZINE [Suspect]
     Indication: METASTATIC MALIGNANT MELANOMA
     Dosage: 2270-2250 MG INTRAVENOUS; 2270 MG INTRAVENOUS; 2270 MG INTRAVENOUS; 2250 INTRAVENOUS
     Route: 042
     Dates: start: 20050829, end: 20050829
  2. DACARBAZINE [Suspect]
     Indication: METASTATIC MALIGNANT MELANOMA
     Dosage: 2270-2250 MG INTRAVENOUS; 2270 MG INTRAVENOUS; 2270 MG INTRAVENOUS; 2250 INTRAVENOUS
     Route: 042
     Dates: start: 20050919, end: 20050919
  3. DACARBAZINE [Suspect]
     Indication: METASTATIC MALIGNANT MELANOMA
     Dosage: 2270-2250 MG INTRAVENOUS; 2270 MG INTRAVENOUS; 2270 MG INTRAVENOUS; 2250 INTRAVENOUS
     Route: 042
     Dates: start: 20050829, end: 20051018

REACTIONS (2)
  - DISEASE PROGRESSION [None]
  - METASTATIC MALIGNANT MELANOMA [None]
